FAERS Safety Report 18627222 (Version 1)
Quarter: 2020Q4

REPORT INFORMATION
  Report Type: Report from Study
  Country: None (occurrence: US)
  Receive Date: 20201217
  Receipt Date: 20201217
  Transmission Date: 20210114
  Serious: Yes (Hospitalization)
  Sender: FDA-Public Use
  Company Number: NL-ABBVIE-19S-114-2641983-00

PATIENT
  Age: 65 Year
  Sex: Female

DRUGS (3)
  1. DUODOPA [Suspect]
     Active Substance: CARBIDOPA\LEVODOPA
     Dosage: MD: 12.8 CD: 3.6 ED: 0.5
     Route: 050
  2. DUODOPA [Suspect]
     Active Substance: CARBIDOPA\LEVODOPA
     Indication: PARKINSON^S DISEASE
     Dosage: MD 12.8, MD 3.6, ED 0.5
     Route: 050
     Dates: start: 20190114
  3. SINEMET [Concomitant]
     Active Substance: CARBIDOPA\LEVODOPA
     Indication: PARKINSON^S DISEASE

REACTIONS (7)
  - Apathy [Unknown]
  - Muscular weakness [Unknown]
  - Syncope [Not Recovered/Not Resolved]
  - Medical device site discolouration [Unknown]
  - Medical device site dryness [Unknown]
  - Stoma site pain [Not Recovered/Not Resolved]
  - Fibroma [Unknown]

NARRATIVE: CASE EVENT DATE: 2019
